FAERS Safety Report 14242065 (Version 1)
Quarter: 2017Q4

REPORT INFORMATION
  Report Type: Report from Study
  Country: US (occurrence: US)
  Receive Date: 20171201
  Receipt Date: 20171201
  Transmission Date: 20180321
  Serious: Yes (Hospitalization, Other)
  Sender: FDA-Public Use
  Company Number: US-TEVA-2017-US-829363

PATIENT
  Age: 24 Year
  Sex: Male

DRUGS (1)
  1. AMPHETAMINE W/DEXTROAMPHETAMINE [Suspect]
     Active Substance: AMPHETAMINE SULFATE\DEXTROAMPHETAMINE
     Dosage: SNORTED DRUG

REACTIONS (4)
  - Cardiac failure [Unknown]
  - Product use issue [Unknown]
  - Chest discomfort [Unknown]
  - Dyspnoea [Unknown]
